FAERS Safety Report 6641683-5 (Version None)
Quarter: 2010Q1

REPORT INFORMATION
  Report Type: 
  Country: None (occurrence: None)
  Receive Date: 20100318
  Receipt Date: 20100309
  Transmission Date: 20100710
  Serious: Yes (Other)
  Sender: FDA-Public Use
  Company Number: US-ABBOTT-10P-163-0630931-00

PATIENT
  Sex: Female
  Weight: 56.75 kg

DRUGS (4)
  1. HUMIRA [Suspect]
     Indication: RHEUMATOID ARTHRITIS
     Dates: start: 20080101, end: 20100201
  2. HUMIRA [Suspect]
     Indication: ANKYLOSING SPONDYLITIS
     Dates: start: 20100301
  3. UNKNOWN BLOOD PRESSURE MEDICATION [Concomitant]
     Indication: DRUG USE FOR UNKNOWN INDICATION
  4. POTASSIUM [Concomitant]
     Indication: DRUG USE FOR UNKNOWN INDICATION

REACTIONS (3)
  - CARDIAC STRESS TEST ABNORMAL [None]
  - CORONARY ARTERY OCCLUSION [None]
  - PAIN IN EXTREMITY [None]
